FAERS Safety Report 21452708 (Version 1)
Quarter: 2022Q4

REPORT INFORMATION
  Report Type: Spontaneous
  Country: US (occurrence: None)
  Receive Date: 20221013
  Receipt Date: 20221013
  Transmission Date: 20230112
  Serious: Yes (Other)
  Sender: FDA-Public Use
  Company Number: US-ROCHE-3193809

PATIENT
  Age: 47 Year
  Sex: Female

DRUGS (1)
  1. OCREVUS [Suspect]
     Active Substance: OCRELIZUMAB
     Indication: Relapsing multiple sclerosis
     Route: 042

REACTIONS (6)
  - Renal failure [Unknown]
  - Fatigue [Unknown]
  - Pain [Unknown]
  - Gait disturbance [Unknown]
  - Muscle tightness [Unknown]
  - Walking aid user [Unknown]

NARRATIVE: CASE EVENT DATE: 20221002
